FAERS Safety Report 12067696 (Version 1)
Quarter: 2016Q1

REPORT INFORMATION
  Report Type: Spontaneous
  Country: SE (occurrence: SE)
  Receive Date: 20160211
  Receipt Date: 20160211
  Transmission Date: 20160526
  Serious: Yes (Other)
  Sender: FDA-Public Use
  Company Number: CHPA2014SE015308

PATIENT

DRUGS (3)
  1. SCOPODERM TTS [Suspect]
     Active Substance: SCOPOLAMINE
     Indication: OFF LABEL USE
  2. SCOPODERM TTS [Suspect]
     Active Substance: SCOPOLAMINE
     Indication: SECRETION DISCHARGE
     Dosage: 1-2 PATCHES A DAY
     Route: 065
     Dates: start: 20141105
  3. LEVAXIN [Concomitant]
     Active Substance: LEVOTHYROXINE SODIUM
     Indication: HYPOTHYROIDISM
     Dosage: UNK
     Route: 065

REACTIONS (3)
  - Fall [Unknown]
  - Wrong technique in product usage process [Unknown]
  - Confusional state [Unknown]

NARRATIVE: CASE EVENT DATE: 20141105
